FAERS Safety Report 4391496-2 (Version None)
Quarter: 2004Q3

REPORT INFORMATION
  Report Type: 
  Country: None (occurrence: None)
  Receive Date: 20040702
  Receipt Date: 20040421
  Transmission Date: 20050211
  Serious: Yes (Other)
  Sender: FDA-Public Use
  Company Number: 2003UW14845

PATIENT
  Age: 65 Year
  Sex: Female
  Weight: 60.782 kg

DRUGS (5)
  1. CRESTOR [Suspect]
     Indication: HYPERCHOLESTEROLAEMIA
     Dosage: 10 MG QD PO
     Route: 048
     Dates: start: 20031101
  2. ACIDIFEX [Concomitant]
  3. PRILOSEC [Concomitant]
  4. FIORICET [Concomitant]
  5. CORTISONE [Concomitant]

REACTIONS (3)
  - ARTHRALGIA [None]
  - DIARRHOEA [None]
  - RHINORRHOEA [None]
